FAERS Safety Report 6207335-0 (Version None)
Quarter: 2009Q2

REPORT INFORMATION
  Report Type: 
  Country: None (occurrence: None)
  Receive Date: 20090527
  Receipt Date: 20090527
  Transmission Date: 20091009
  Serious: Yes (Other)
  Sender: FDA-Public Use
  Company Number: None

PATIENT
  Age: 51 Year
  Sex: Male
  Weight: 90.9 kg

DRUGS (1)
  1. FLUTICASONE PROPIONATE [Suspect]
     Indication: SEASONAL ALLERGY
     Dosage: 1 PUFF OF 0.05% EACH NOSE DAILY INTRANASAL
     Dates: start: 20090520, end: 20090525

REACTIONS (4)
  - AGEUSIA [None]
  - ANOSMIA [None]
  - IMPAIRED WORK ABILITY [None]
  - WEIGHT ABNORMAL [None]
